FAERS Safety Report 10210816 (Version 4)
Quarter: 2015Q3

REPORT INFORMATION
  Report Type: Spontaneous
  Country: US (occurrence: US)
  Receive Date: 20140602
  Receipt Date: 20150821
  Transmission Date: 20151125
  Serious: Yes (Hospitalization)
  Sender: FDA-Public Use
  Company Number: US-BAYER-2014-080046

PATIENT
  Age: 46 Year
  Sex: Female
  Weight: 108.39 kg

DRUGS (1)
  1. MIRENA [Suspect]
     Active Substance: LEVONORGESTREL
     Indication: CONTRACEPTION
     Dosage: 20 MCG/24HR, CONT
     Route: 015
     Dates: start: 20090514, end: 20140604

REACTIONS (6)
  - Procedural pain [None]
  - Device difficult to use [None]
  - Procedural dizziness [None]
  - Embedded device [Recovered/Resolved]
  - Discomfort [None]
  - Device difficult to use [None]

NARRATIVE: CASE EVENT DATE: 2014
